FAERS Safety Report 16138759 (Version 4)
Quarter: 2019Q2

REPORT INFORMATION
  Report Type: Spontaneous
  Country: US (occurrence: US)
  Receive Date: 20190401
  Receipt Date: 20190628
  Transmission Date: 20190711
  Serious: Yes (Life-Threatening, Hospitalization, Other)
  Sender: FDA-Public Use
  Company Number: US-LUPIN PHARMACEUTICALS INC.-2019-01777

PATIENT
  Age: 71 Year
  Sex: Female
  Weight: 79.37 kg

DRUGS (6)
  1. DULOXETINE DELAYED-RELEASE CAPSULES [Suspect]
     Active Substance: DULOXETINE
     Indication: ANXIETY DISORDER
     Dosage: 60 MILLIGRAM, QD
     Route: 048
     Dates: start: 20181119, end: 20181126
  2. KLONOPIN [Concomitant]
     Active Substance: CLONAZEPAM
     Indication: PRODUCT USED FOR UNKNOWN INDICATION
     Dosage: UNK
     Route: 065
  3. DULOXETINE DELAYED-RELEASE CAPSULES 40 MG [Suspect]
     Active Substance: DULOXETINE
     Indication: ANXIETY DISORDER
  4. DULOXETINE DELAYED-RELEASE CAPSULES 40 MG [Suspect]
     Active Substance: DULOXETINE
     Indication: PANIC DISORDER
     Dosage: 40 MILLIGRAM
     Route: 048
     Dates: start: 20181112, end: 20181119
  5. DULOXETINE DELAYED-RELEASE CAPSULES [Suspect]
     Active Substance: DULOXETINE
     Indication: PANIC DISORDER
     Dosage: 20 MILLIGRAM, QD
     Route: 048
     Dates: start: 20181105, end: 20181112
  6. BUSPAR [Concomitant]
     Active Substance: BUSPIRONE HYDROCHLORIDE
     Indication: PRODUCT USED FOR UNKNOWN INDICATION
     Dosage: UNK
     Route: 065

REACTIONS (16)
  - Tremor [Unknown]
  - Malaise [Unknown]
  - Prescription drug used without a prescription [Unknown]
  - Dyspnoea [Unknown]
  - Chest discomfort [Unknown]
  - Weight decreased [Recovered/Resolved]
  - Lethargy [Recovered/Resolved]
  - Insomnia [Unknown]
  - Incontinence [Not Recovered/Not Resolved]
  - Dizziness [Not Recovered/Not Resolved]
  - Panic attack [Not Recovered/Not Resolved]
  - Feeding disorder [Unknown]
  - Loss of consciousness [Unknown]
  - Eye swelling [Recovering/Resolving]
  - Apparent death [Unknown]
  - Functional gastrointestinal disorder [Unknown]

NARRATIVE: CASE EVENT DATE: 20181105
